FAERS Safety Report 7955007-4 (Version None)
Quarter: 2011Q4

REPORT INFORMATION
  Report Type: 
  Country: None (occurrence: None)
  Receive Date: 20111202
  Receipt Date: 20111125
  Transmission Date: 20120403
  Serious: Yes (Other)
  Sender: FDA-Public Use
  Company Number: PHHY2011ES104313

PATIENT
  Age: 13 Year
  Sex: Male

DRUGS (4)
  1. ACETAMINOPHEN [Suspect]
     Dosage: UNK UKN, UNK
  2. DEXAMETHASONE [Suspect]
     Dosage: UNK UKN, UNK
  3. CEFOTAXIME [Suspect]
     Dosage: UNK UKN, UNK
  4. METAMIZOLE [Suspect]
     Dosage: UNK UKN, UNK

REACTIONS (2)
  - STEVENS-JOHNSON SYNDROME [None]
  - DRUG ERUPTION [None]
